FAERS Safety Report 25037931 (Version 3)
Quarter: 2025Q2

REPORT INFORMATION
  Report Type: Spontaneous
  Country: AR (occurrence: AR)
  Receive Date: 20250304
  Receipt Date: 20250418
  Transmission Date: 20250716
  Serious: Yes (Hospitalization)
  Sender: BIOMARIN
  Company Number: AR-SA-2025SA061147

PATIENT

DRUGS (1)
  1. LARONIDASE [Suspect]
     Active Substance: LARONIDASE
     Indication: Mucopolysaccharidosis I
     Dosage: 5 DF (VIALS), QW
     Route: 041
     Dates: start: 20190113

REACTIONS (2)
  - Mitral valve disease [Not Recovered/Not Resolved]
  - Delayed recovery from anaesthesia [Recovered/Resolved]

NARRATIVE: CASE EVENT DATE: 20250224
